FAERS Safety Report 4384855-5 (Version None)
Quarter: 2004Q2

REPORT INFORMATION
  Report Type: 
  Country: None (occurrence: None)
  Receive Date: 20040623
  Receipt Date: 20040623
  Transmission Date: 20050107
  Serious: Yes (Hospitalization, Other)
  Sender: FDA-Public Use
  Company Number: None

PATIENT
  Age: 51 Year
  Sex: Female
  Weight: 84 kg

DRUGS (9)
  1. INTEGRILIN [Suspect]
     Indication: ANTIPLATELET THERAPY
     Dosage: 2(7.3 ML BOLUSES) 6.5 ML/HR IV
     Route: 042
     Dates: start: 20040617, end: 20040618
  2. FENTANYL [Concomitant]
  3. MIDAZOLAM HCL [Concomitant]
  4. DIPHENHYDRAMINE [Concomitant]
  5. NITROGLYCERIN [Concomitant]
  6. PREDNISONE [Concomitant]
  7. ASPIRIN [Concomitant]
  8. CLOPIDOGREL BISULFATE [Concomitant]
  9. PEPCID [Concomitant]

REACTIONS (4)
  - BLOOD CREATINE PHOSPHOKINASE MB INCREASED [None]
  - CHEST PAIN [None]
  - DRUG INEFFECTIVE [None]
  - POST PROCEDURAL COMPLICATION [None]
